FAERS Safety Report 5025762-4 (Version None)
Quarter: 2006Q2

REPORT INFORMATION
  Report Type: 
  Country: None (occurrence: None)
  Receive Date: 20060609
  Receipt Date: 20060609
  Transmission Date: 20061013
  Serious: Yes (Other)
  Sender: FDA-Public Use
  Company Number: None

PATIENT
  Age: 77 Year
  Sex: Female
  Weight: 65.7716 kg

DRUGS (1)
  1. LEVOXYL [Suspect]
     Indication: THYROID DISORDER
     Dosage: 75 MCG 1 PO Q DAY
     Route: 048

REACTIONS (3)
  - DRUG LEVEL CHANGED [None]
  - MALAISE [None]
  - PHARMACEUTICAL PRODUCT COMPLAINT [None]
